FAERS Safety Report 22059932 (Version 3)
Quarter: 2023Q4

REPORT INFORMATION
  Report Type: Report from Study
  Country: US (occurrence: US)
  Receive Date: 20230303
  Receipt Date: 20231025
  Transmission Date: 20240109
  Serious: No
  Sender: FDA-Public Use
  Company Number: US-IDORSIA-003716-2023-US

PATIENT
  Age: 76 Year
  Sex: Female

DRUGS (2)
  1. QUVIVIQ [Suspect]
     Active Substance: DARIDOREXANT
     Indication: Insomnia
     Dosage: 50 MG, QD
     Route: 048
     Dates: start: 20230215, end: 20230218
  2. QUVIVIQ [Suspect]
     Active Substance: DARIDOREXANT
     Dosage: 25 MG, QD
     Route: 048
     Dates: start: 20230221, end: 20230222

REACTIONS (6)
  - Pruritus [Recovering/Resolving]
  - Throat tightness [Recovering/Resolving]
  - Headache [Not Recovered/Not Resolved]
  - Nausea [Not Recovered/Not Resolved]
  - Feeling abnormal [Not Recovered/Not Resolved]
  - Wrong technique in product usage process [Unknown]

NARRATIVE: CASE EVENT DATE: 20230201
